FAERS Safety Report 8348005-2 (Version None)
Quarter: 2012Q2

REPORT INFORMATION
  Report Type: 
  Country: None (occurrence: None)
  Receive Date: 20120509
  Receipt Date: 20120429
  Transmission Date: 20120825
  Serious: Yes (Hospitalization)
  Sender: FDA-Public Use
  Company Number: FR-JNJFOC-20110105901

PATIENT
  Age: 44 Year
  Sex: Female
  Weight: 50.7 kg

DRUGS (4)
  1. REMICADE [Suspect]
     Indication: COLITIS ULCERATIVE
     Route: 042
     Dates: start: 20100607
  2. REMICADE [Suspect]
     Route: 042
     Dates: start: 20100531
  3. AZATHIOPRINE [Concomitant]
     Indication: COLITIS ULCERATIVE
     Route: 048
     Dates: start: 20050101
  4. REMICADE [Suspect]
     Route: 042
     Dates: start: 20100708

REACTIONS (4)
  - COLECTOMY [None]
  - ABDOMINAL PAIN [None]
  - GENERAL PHYSICAL HEALTH DETERIORATION [None]
  - PROCTOCOLECTOMY [None]
